FAERS Safety Report 5599858-2 (Version None)
Quarter: 2008Q1

REPORT INFORMATION
  Report Type: 
  Country: None (occurrence: None)
  Receive Date: 20080117
  Receipt Date: 20080117
  Transmission Date: 20080703
  Serious: No
  Sender: FDA-Public Use
  Company Number: None

PATIENT
  Sex: Female
  Weight: 104.7809 kg

DRUGS (2)
  1. ASMANEX TWISTHALER [Suspect]
     Indication: ASTHMA
     Dosage: 120 META DOSE 222MCG ONE PUFF TWICE DAILY
     Dates: start: 20070906
  2. ASMANEX TWISTHALER [Suspect]
     Indication: ASTHMA
     Dosage: 120 META DOSE 222MCG ONE PUFF TWICE DAILY
     Dates: start: 20071024

REACTIONS (2)
  - DRUG INTOLERANCE [None]
  - NAUSEA [None]
